FAERS Safety Report 9049278 (Version 3)
Quarter: 2013Q2

REPORT INFORMATION
  Report Type: Report from Study
  Country: BE (occurrence: BE)
  Receive Date: 20130205
  Receipt Date: 20130403
  Transmission Date: 20140414
  Serious: Yes (Hospitalization, Other)
  Sender: FDA-Public Use
  Company Number: BE-ROCHE-1186375

PATIENT
  Age: 80 Year
  Sex: Female
  Weight: 66.4 kg

DRUGS (13)
  1. BEVACIZUMAB [Suspect]
     Indication: COLORECTAL CANCER
     Dosage: LAST DOSE 22/JAN/2013, 05/MAR/2013.
     Route: 042
     Dates: start: 20121113
  2. CAMPTO [Suspect]
     Indication: COLORECTAL CANCER
     Dosage: LAST DOSE 22/JAN/2013, 05/MAR/2013.
     Route: 042
     Dates: start: 20121113
  3. 5-FLUOROURACIL [Suspect]
     Indication: COLORECTAL CANCER
     Dosage: LAST DOSE 22/JAN/2013
     Route: 042
     Dates: start: 20121113
  4. 5-FLUOROURACIL [Suspect]
     Dosage: LAST DOSE 05/MAR/2013.
     Route: 040
     Dates: start: 20121113, end: 20130305
  5. BISOPROLOL FUMARAT [Concomitant]
     Indication: HYPERTENSION
     Route: 048
     Dates: start: 201205
  6. DEANXIT [Concomitant]
     Dosage: 0.5MG + 10 MG
     Route: 048
     Dates: end: 20130206
  7. DIOVANE [Concomitant]
     Indication: HYPERTENSION
     Route: 048
  8. LIPITOR [Concomitant]
     Route: 048
  9. RANITIDINE [Concomitant]
     Route: 048
     Dates: start: 2010
  10. LITICAN [Concomitant]
     Indication: NAUSEA
     Route: 048
     Dates: start: 20121029
  11. LITICAN [Concomitant]
     Indication: VOMITING
  12. MOTILIUM (BELGIUM) [Concomitant]
     Indication: NAUSEA
     Route: 048
     Dates: start: 20121029
  13. ARANESP [Concomitant]
     Indication: ANAEMIA
     Route: 058
     Dates: start: 20121204, end: 20121218

REACTIONS (8)
  - C-reactive protein increased [Unknown]
  - Renal failure acute [Recovered/Resolved]
  - Nausea [Unknown]
  - Hyponatraemia [Unknown]
  - Febrile neutropenia [Recovered/Resolved]
  - Anaemia [Recovering/Resolving]
  - Dehydration [Recovered/Resolved]
  - Prerenal failure [Recovered/Resolved]
